FAERS Safety Report 11922371 (Version 6)
Quarter: 2020Q2

REPORT INFORMATION
  Report Type: Spontaneous
  Country: US (occurrence: US)
  Receive Date: 20160115
  Receipt Date: 20200407
  Transmission Date: 20200713
  Serious: No
  Sender: FDA-Public Use
  Company Number: US-SA-2016SA006859

PATIENT
  Age: 53 Year
  Sex: Male

DRUGS (2)
  1. FABRAZYME [Suspect]
     Active Substance: AGALSIDASE BETA
     Indication: FABRY^S DISEASE
     Dosage: 30 MG, EVERY 2 WEEKS
     Route: 041
     Dates: start: 20150128
  2. FABRAZYME [Suspect]
     Active Substance: AGALSIDASE BETA
     Dosage: 70 MG, EVERY 2 WEEKS
     Route: 041
     Dates: start: 20150128

REACTIONS (7)
  - Rosacea [Unknown]
  - Cardiac stress test abnormal [Unknown]
  - Acne [Unknown]
  - Renal cyst [Unknown]
  - Incorrect dose administered [Unknown]
  - Product leakage [Unknown]
  - Headache [Unknown]

NARRATIVE: CASE EVENT DATE: 20160311
